FAERS Safety Report 22102990 (Version 1)
Quarter: 2023Q1

REPORT INFORMATION
  Report Type: Spontaneous
  Country: PL (occurrence: PL)
  Receive Date: 20230316
  Receipt Date: 20230316
  Transmission Date: 20230418
  Serious: Yes (Other)
  Sender: FDA-Public Use
  Company Number: PL-CELLTRION INC.-2023PL005635

PATIENT

DRUGS (4)
  1. INFLIXIMAB [Suspect]
     Active Substance: INFLIXIMAB
     Indication: Colitis ulcerative
     Dosage: INDUCTION DOSING WITH INFLIXIMAB 5 MG/KG BODY WEIGHT IV
     Route: 042
  2. INFLIXIMAB [Suspect]
     Active Substance: INFLIXIMAB
     Dosage: MAINTENANCE DOSING REGIMENS FOR INFLIXIMAB WAS 5 MG/KG IV
     Route: 042
  3. VEDOLIZUMAB [Suspect]
     Active Substance: VEDOLIZUMAB
     Indication: Colitis ulcerative
     Dosage: VEDOLIZUMAB (FOR PATIENT LESS THAN OR EQUAL TO 30 KG-150 MG IV; GREATER THAN OR EQUAL TO 30 KG WEIGH
     Route: 042
  4. VEDOLIZUMAB [Suspect]
     Active Substance: VEDOLIZUMAB
     Dosage: VEDOLIZUMAB WAS EITHER 150 MG OR 300 MG IV (}/-30 KG BODY WEIGHT) IV
     Route: 042

REACTIONS (3)
  - COVID-19 [Unknown]
  - Cardiac disorder [Unknown]
  - Off label use [Unknown]
